FAERS Safety Report 5522206-0 (Version None)
Quarter: 2007Q4

REPORT INFORMATION
  Report Type: 
  Country: None (occurrence: None)
  Receive Date: 20071115
  Receipt Date: 20071106
  Transmission Date: 20080405
  Serious: Yes (Hospitalization)
  Sender: FDA-Public Use
  Company Number: 2007SP022422

PATIENT
  Age: 50 Year
  Sex: Female

DRUGS (3)
  1. FRISTAMIN (LORATADINE) (LORATADINE) [Suspect]
     Indication: RHINITIS ALLERGIC
     Dosage: 1 DF; QD; PO
     Route: 048
     Dates: start: 20071022, end: 20071024
  2. MINULET (FEMODENE) [Suspect]
     Indication: CONTRACEPTION
     Dosage: 1 DF; QD; PO
     Route: 048
     Dates: start: 20060209, end: 20071024
  3. ANTIADIPOSO (ANTIADIPOSO) [Suspect]
     Indication: WEIGHT DECREASED
     Dosage: 1 DF; QD; PO
     Route: 048
     Dates: start: 20070902, end: 20071024

REACTIONS (4)
  - APHASIA [None]
  - ARTERIAL THROMBOSIS [None]
  - HEADACHE [None]
  - SPEECH DISORDER [None]
